FAERS Safety Report 6870110-8 (Version None)
Quarter: 2010Q3

REPORT INFORMATION
  Report Type: 
  Country: None (occurrence: None)
  Receive Date: 20100722
  Receipt Date: 20100710
  Transmission Date: 20110219
  Serious: Yes (Hospitalization, Other)
  Sender: FDA-Public Use
  Company Number: IN-PFIZER INC-2010075057

PATIENT
  Age: 47 Year
  Sex: Male

DRUGS (1)
  1. SUTENT [Suspect]
     Indication: METASTATIC RENAL CELL CARCINOMA
     Dosage: 50 MG, 1X/DAY
     Route: 048

REACTIONS (3)
  - HEMIPARESIS [None]
  - PERICARDIAL EFFUSION [None]
  - PULMONARY CONGESTION [None]
